FAERS Safety Report 24326534 (Version 1)
Quarter: 2024Q3

REPORT INFORMATION
  Report Type: Spontaneous
  Country: US (occurrence: US)
  Receive Date: 20240917
  Receipt Date: 20240917
  Transmission Date: 20241017
  Serious: No
  Sender: SAREPTA THERAPEUTICS
  Company Number: US-SAREPTA THERAPEUTICS INC.-SRP2024-004277

PATIENT
  Age: 24 Year
  Sex: Male

DRUGS (1)
  1. VYONDYS 53 [Suspect]
     Active Substance: GOLODIRSEN
     Indication: Product used for unknown indication
     Dosage: 1800 MILLIGRAM, WEEKLY

REACTIONS (2)
  - Protein total increased [Unknown]
  - Cystatin C increased [Unknown]

NARRATIVE: CASE EVENT DATE: 20240101
